FAERS Safety Report 4329857-X (Version None)
Quarter: 2004Q1

REPORT INFORMATION
  Report Type: 
  Country: None (occurrence: None)
  Receive Date: 20040329
  Receipt Date: 20040317
  Transmission Date: 20041129
  Serious: Yes (Hospitalization)
  Sender: FDA-Public Use
  Company Number: FR-JNJFOC-20040303968

PATIENT
  Age: 42 Year
  Sex: Female

DRUGS (4)
  1. TRAMADOL HCL [Suspect]
     Indication: BRACHIAL PLEXUS LESION
     Dosage: 150 MG, ORAL
     Route: 048
     Dates: start: 20040204, end: 20040205
  2. TRAMADOL HCL [Suspect]
     Indication: DYSMENORRHOEA
     Dosage: 150 MG, ORAL
     Route: 048
     Dates: start: 20040204, end: 20040205
  3. CLIMASTON (CLIMASTON) [Concomitant]
  4. RIVOTRIL (RIVOTRIL) [Concomitant]

REACTIONS (12)
  - ASTHENIA [None]
  - BLOOD PRESSURE DECREASED [None]
  - DIZZINESS [None]
  - DRUG INEFFECTIVE [None]
  - FALL [None]
  - FATIGUE [None]
  - HYPERHIDROSIS [None]
  - LOSS OF CONSCIOUSNESS [None]
  - MALAISE [None]
  - NAUSEA [None]
  - SLEEP DISORDER [None]
  - VOMITING [None]
